FAERS Safety Report 7477084-X (Version None)
Quarter: 2011Q2

REPORT INFORMATION
  Report Type: 
  Country: None (occurrence: None)
  Receive Date: 20110512
  Receipt Date: 20100510
  Transmission Date: 20111010
  Serious: No
  Sender: FDA-Public Use
  Company Number: US-AMGEN-TCS411749

PATIENT
  Age: 48 Year
  Sex: Female

DRUGS (1)
  1. ENBREL [Suspect]
     Indication: RHEUMATOID ARTHRITIS
     Dosage: UNK UNK, UNK
     Dates: start: 20080901

REACTIONS (4)
  - CHILLS [None]
  - ACTIVITIES OF DAILY LIVING IMPAIRED [None]
  - RHEUMATOID ARTHRITIS [None]
  - NASOPHARYNGITIS [None]
